FAERS Safety Report 5128976-8 (Version None)
Quarter: 2006Q4

REPORT INFORMATION
  Report Type: 
  Country: None (occurrence: None)
  Receive Date: 20061016
  Receipt Date: 20061016
  Transmission Date: 20070319
  Serious: Yes (Hospitalization)
  Sender: FDA-Public Use
  Company Number: None

PATIENT
  Age: 70 Year
  Sex: Male
  Weight: 73 kg

DRUGS (1)
  1. APROTININ [Suspect]
     Indication: CORONARY ARTERY BYPASS
     Dosage: 2,000,000 KIU IV
     Route: 042
     Dates: start: 20061004, end: 20061004

REACTIONS (3)
  - CEREBROVASCULAR ACCIDENT [None]
  - POST PROCEDURAL COMPLICATION [None]
  - RENAL FAILURE ACUTE [None]
